FAERS Safety Report 23388067 (Version 1)
Quarter: 2024Q1

REPORT INFORMATION
  Report Type: Spontaneous
  Country: US (occurrence: None)
  Receive Date: 20240109
  Receipt Date: 20240109
  Transmission Date: 20240410
  Serious: Yes (Hospitalization)
  Sender: FDA-Public Use
  Company Number: None

PATIENT
  Age: 58 Year
  Sex: Male
  Weight: 81.65 kg

DRUGS (5)
  1. PRALUENT [Suspect]
     Active Substance: ALIROCUMAB
     Indication: Blood cholesterol increased
     Dates: start: 20210804, end: 20230101
  2. LOSARTAN [Concomitant]
  3. MTN^S multivitamin [Concomitant]
  4. ASPIRIN [Concomitant]
     Active Substance: ASPIRIN
  5. vit. d [Concomitant]

REACTIONS (5)
  - Injection site pain [None]
  - Pain in extremity [None]
  - Arthralgia [None]
  - Insomnia [None]
  - Decreased activity [None]

NARRATIVE: CASE EVENT DATE: 20211028
